FAERS Safety Report 4380108-X (Version None)
Quarter: 2004Q2

REPORT INFORMATION
  Report Type: 
  Country: None (occurrence: None)
  Receive Date: 20040616
  Receipt Date: 20040602
  Transmission Date: 20050107
  Serious: Yes (Hospitalization)
  Sender: FDA-Public Use
  Company Number: 2004S1001614

PATIENT
  Age: 81 Year
  Sex: Female

DRUGS (7)
  1. METOPROLOL TARTRATE [Suspect]
     Indication: HYPERTENSION
     Dosage: 100MG BID, ORAL
     Route: 048
     Dates: start: 20011019, end: 20011101
  2. ROSIGLITAZONE [Concomitant]
  3. METFORMIN HCL [Concomitant]
  4. IRBESARTAN [Concomitant]
  5. ASPIRIN [Concomitant]
  6. NAPROXEN SODIUM [Concomitant]
  7. ATORVASTATIN CALCIUM [Concomitant]

REACTIONS (3)
  - PULMONARY CONGESTION [None]
  - PULMONARY OEDEMA [None]
  - PULMONARY VASCULAR DISORDER [None]
